FAERS Safety Report 6518634-7 (Version None)
Quarter: 2009Q4

REPORT INFORMATION
  Report Type: 
  Country: None (occurrence: None)
  Receive Date: 20091228
  Receipt Date: 20091216
  Transmission Date: 20100525
  Serious: Yes (Other)
  Sender: FDA-Public Use
  Company Number: US-ROCHE-667157

PATIENT
  Sex: Female

DRUGS (3)
  1. PEGASYS [Suspect]
     Indication: HEPATITIS C
     Dosage: FORM: PRE- FILLED SYRINGE
     Route: 058
     Dates: start: 20091021, end: 20091104
  2. COPEGUS [Suspect]
     Indication: HEPATITIS C
     Dosage: DIVIDED DOSES
     Route: 048
     Dates: start: 20091021, end: 20091104
  3. LACTULOSE [Concomitant]
     Indication: PROPHYLAXIS
     Dates: start: 20091027

REACTIONS (6)
  - ABDOMINAL DISTENSION [None]
  - BACK PAIN [None]
  - FLATULENCE [None]
  - HEPATITIS [None]
  - INFREQUENT BOWEL MOVEMENTS [None]
  - SPLENITIS [None]
